FAERS Safety Report 8925330 (Version 2)
Quarter: 2012Q4

REPORT INFORMATION
  Report Type: 
  Country: US (occurrence: None)
  Receive Date: 20121116
  Receipt Date: 20121126
  Transmission Date: 20130627
  Serious: Yes (Hospitalization)
  Sender: FDA-Public Use
  Company Number: JPI-P-026214

PATIENT
  Age: 43 Year
  Sex: Male
  Weight: 117.94 kg

DRUGS (7)
  1. XYREM [Suspect]
     Indication: CATAPLEXY
     Route: 048
     Dates: start: 20021223
  2. XYREM [Suspect]
     Indication: CATAPLEXY
     Dosage: (4.5 gm, 2 in 1 D)
     Route: 048
  3. LAMOTRIGINE [Concomitant]
  4. ZOLPIDEM TARTRATE [Concomitant]
  5. POLYETHYLENE GLYCOL [Concomitant]
  6. BUPROPION HYDROCHLORIDE [Concomitant]
  7. PREGABALIN [Concomitant]

REACTIONS (3)
  - Splenic rupture [None]
  - Weight decreased [None]
  - Fall [None]
